FAERS Safety Report 20622443 (Version 5)
Quarter: 2024Q3

REPORT INFORMATION
  Report Type: Spontaneous
  Country: US (occurrence: US)
  Receive Date: 20220322
  Receipt Date: 20240701
  Transmission Date: 20241016
  Serious: Yes (Disabling, Other)
  Sender: PFIZER
  Company Number: US-PFIZER INC-2021855691

PATIENT
  Age: 42 Year
  Sex: Female

DRUGS (1)
  1. XELJANZ XR [Suspect]
     Active Substance: TOFACITINIB CITRATE
     Dosage: 11 MG
     Route: 048

REACTIONS (5)
  - Rosacea [Unknown]
  - Cerebral palsy [Unknown]
  - Pelvic fracture [Unknown]
  - Migraine [Unknown]
  - COVID-19 [Unknown]

NARRATIVE: CASE EVENT DATE: 20220318
